FAERS Safety Report 25952695 (Version 1)
Quarter: 2025Q4

REPORT INFORMATION
  Report Type: Spontaneous
  Country: US (occurrence: None)
  Receive Date: 20251023
  Receipt Date: 20251023
  Transmission Date: 20260117
  Serious: Yes (Hospitalization)
  Sender: FDA-CTU
  Company Number: None

PATIENT
  Age: 65 Year
  Sex: Female

DRUGS (1)
  1. IBRANCE [Suspect]
     Active Substance: PALBOCICLIB
     Dosage: OTHER QUANTITY : UNKNOWN, NOT FILLED BY OPTUM ?OTHER FREQUENCY : UNKNOWN, NOT FILLED BY OPTUM ?
     Route: 048

REACTIONS (4)
  - Pulmonary embolism [None]
  - Therapy cessation [None]
  - Lung disorder [None]
  - Condition aggravated [None]
